FAERS Safety Report 9506113 (Version 1)
Quarter: 2013Q1

REPORT INFORMATION
  Report Type: Spontaneous
  Country: US (occurrence: None)
  Receive Date: 20130305
  Receipt Date: 20130305
  Transmission Date: 20140127
  Serious: No
  Sender: FDA-Public Use
  Company Number: 1000040098

PATIENT
  Age: 75 Year
  Sex: Female

DRUGS (9)
  1. DALIRESP [Suspect]
     Indication: CHRONIC OBSTRUCTIVE PULMONARY DISEASE
     Dosage: (500 MCG, 1 IN 1 D), ORAL?
     Route: 048
     Dates: start: 201209, end: 201210
  2. POTASSIUM (POTASSIUM) (10 MILLIEQUIVALENTS, TABLETS) (POTASSIUM) [Concomitant]
  3. LASIX (FUROSEMIDE) (40 MILLIGRAM, TABLETS) (FUROSEMIDE) [Concomitant]
  4. ZOLOFT (SERTRALINE HYDROCHLORIDE) (100 MILLIGRAM, TABLETS) (SERTRALINE HYDROCHLORIDE) [Concomitant]
  5. ISISORBIDE MONONITRATE (ISISORBIDE MONONITRATE) (60 MILLIGRAM, TABLETS) (ISOSORBIDE MONONITRATE) [Concomitant]
  6. ASPIRIN (ACETYLSALICYLIC ACID) (ACETYLSALICYLIC ACID) [Concomitant]
  7. BENICAR (OLMESARTAN MEDOXOMIL) (OLMESARTAN MEDOXOMIL) [Concomitant]
  8. SALMON OIL (SALMON OIL) (SALMON OIL) [Concomitant]
  9. IPRATROPIUM (IPRATROPIUM) (IPRATROPIUM) [Concomitant]

REACTIONS (11)
  - Tremor [None]
  - Muscle spasms [None]
  - Gastrointestinal pain [None]
  - Heart rate increased [None]
  - Dizziness [None]
  - Abdominal pain [None]
  - Nausea [None]
  - Rhinorrhoea [None]
  - Headache [None]
  - Anxiety [None]
  - Back pain [None]
